FAERS Safety Report 9645379 (Version 7)
Quarter: 2014Q2

REPORT INFORMATION
  Report Type: Spontaneous
  Country: SE (occurrence: SE)
  Receive Date: 20131025
  Receipt Date: 20140612
  Transmission Date: 20141212
  Serious: Yes (Disabling, Other)
  Sender: FDA-Public Use
  Company Number: SE-PFIZER INC-2013301335

PATIENT
  Age: 46 Year
  Sex: Female
  Weight: 55 kg

DRUGS (5)
  1. ZOLOFT [Suspect]
     Indication: BIPOLAR DISORDER
     Dosage: 100 MG, TWICE A DAY
     Route: 048
     Dates: start: 20040331, end: 20120817
  2. OMEPRAZOLE [Concomitant]
  3. TRIATEC COMP [Concomitant]
     Dosage: 5MG/25 MG, UNK
  4. METFORMIN [Concomitant]
  5. KALEROID [Concomitant]

REACTIONS (7)
  - Extrapyramidal disorder [Recovered/Resolved with Sequelae]
  - Cerebellar ataxia [Recovered/Resolved with Sequelae]
  - Depressed level of consciousness [Recovered/Resolved with Sequelae]
  - Hyperkinesia [Recovered/Resolved with Sequelae]
  - Paraesthesia [Recovered/Resolved with Sequelae]
  - Blood glucose abnormal [Recovered/Resolved with Sequelae]
  - Ataxia [Recovered/Resolved with Sequelae]
